FAERS Safety Report 13736872 (Version 1)
Quarter: 2017Q3

REPORT INFORMATION
  Report Type: Spontaneous
  Country: US (occurrence: US)
  Receive Date: 20170710
  Receipt Date: 20170710
  Transmission Date: 20171127
  Serious: No
  Sender: FDA-Public Use
  Company Number: US-LEXICON PHARMACEUTICALS, INC-17-1606-00345

PATIENT
  Age: 83 Year
  Sex: Male

DRUGS (28)
  1. DEXILANT [Concomitant]
     Active Substance: DEXLANSOPRAZOLE
  2. LISINOPRIL. [Concomitant]
     Active Substance: LISINOPRIL
  3. LORATADINE. [Concomitant]
     Active Substance: LORATADINE
  4. METRONIDAZOL [Concomitant]
     Active Substance: METRONIDAZOLE
  5. NITROGLYCERIN. [Concomitant]
     Active Substance: NITROGLYCERIN
  6. BUMETANIDE. [Concomitant]
     Active Substance: BUMETANIDE
  7. ELIQUIS [Concomitant]
     Active Substance: APIXABAN
  8. TRIAMCINOLONE [Concomitant]
     Active Substance: TRIAMCINOLONE
  9. OMEPRAZOLE. [Concomitant]
     Active Substance: OMEPRAZOLE
  10. SPIRONOLACTONE. [Concomitant]
     Active Substance: SPIRONOLACTONE
  11. CALCITRIOL. [Concomitant]
     Active Substance: CALCITRIOL
  12. FLONASE [Concomitant]
     Active Substance: FLUTICASONE PROPIONATE
  13. MAGNESIUM [Concomitant]
     Active Substance: MAGNESIUM
  14. POTASSIUM CHLORIDE. [Concomitant]
     Active Substance: POTASSIUM CHLORIDE
  15. PRAMIPEXOLE. [Concomitant]
     Active Substance: PRAMIPEXOLE
  16. CYANOCOBALAMIN. [Concomitant]
     Active Substance: CYANOCOBALAMIN
  17. LOPERAMIDE [Concomitant]
     Active Substance: LOPERAMIDE
  18. CALCIUM [Concomitant]
     Active Substance: CALCIUM
  19. TELOTRISTAT ETHYL [Suspect]
     Active Substance: TELOTRISTAT ETHYL
     Indication: CARCINOID SYNDROME
  20. CLOPIDOGREL BISULFATE. [Concomitant]
     Active Substance: CLOPIDOGREL BISULFATE
  21. CLOTRIMAZOLE BETAMETHASONE [Concomitant]
  22. FERROUS SULFATE. [Concomitant]
     Active Substance: FERROUS SULFATE
  23. DIPHENOXYLATE ATROPINE [Concomitant]
  24. TELOTRISTAT ETHYL [Suspect]
     Active Substance: TELOTRISTAT ETHYL
     Indication: CARCINOID TUMOUR
     Route: 048
     Dates: start: 20170516
  25. COLESTIPOL [Concomitant]
     Active Substance: COLESTIPOL
  26. OMEGA 3 [Concomitant]
     Active Substance: OMEGA-3 FATTY ACIDS
  27. FUROSEMIDE. [Concomitant]
     Active Substance: FUROSEMIDE
  28. ONDANSETRON [Concomitant]
     Active Substance: ONDANSETRON

REACTIONS (1)
  - Drug effect decreased [Unknown]

NARRATIVE: CASE EVENT DATE: 201705
